FAERS Safety Report 13665131 (Version 1)
Quarter: 2017Q2

REPORT INFORMATION
  Report Type: Spontaneous
  Country: US (occurrence: US)
  Receive Date: 20170619
  Receipt Date: 20170619
  Transmission Date: 20170830
  Serious: Yes (Hospitalization)
  Sender: FDA-Public Use
  Company Number: None

PATIENT
  Age: 30 Year
  Sex: Female
  Weight: 45 kg

DRUGS (3)
  1. CIPROFLOXACIN. [Suspect]
     Active Substance: CIPROFLOXACIN
     Indication: PHARYNGITIS
     Dosage: ?          QUANTITY:28 TABLET(S);?
     Route: 048
     Dates: start: 20170525, end: 20170527
  2. MULTI VITAMIN [Concomitant]
     Active Substance: VITAMINS
  3. NECON [Concomitant]
     Active Substance: ETHINYL ESTRADIOL\NORETHINDRONE

REACTIONS (9)
  - Tinnitus [None]
  - Movement disorder [None]
  - Unevaluable event [None]
  - Depression [None]
  - Pain [None]
  - Musculoskeletal stiffness [None]
  - Sleep disorder [None]
  - Palpitations [None]
  - Fatigue [None]

NARRATIVE: CASE EVENT DATE: 20170528
